FAERS Safety Report 18887182 (Version 2)
Quarter: 2021Q4

REPORT INFORMATION
  Report Type: Spontaneous
  Country: US (occurrence: US)
  Receive Date: 20210212
  Receipt Date: 20211008
  Transmission Date: 20220303
  Serious: No
  Sender: FDA-Public Use
  Company Number: US-SA-SAC20210206000143

PATIENT
  Age: 56 Year
  Sex: Female
  Weight: 66.21 kg

DRUGS (15)
  1. FABRAZYME [Suspect]
     Active Substance: AGALSIDASE BETA
     Indication: Fabry^s disease
     Dosage: 70 MG, QOW
     Route: 042
     Dates: start: 20130211, end: 202101
  2. ACETAMINOPHEN [Concomitant]
     Active Substance: ACETAMINOPHEN
  3. CLARITIN [Concomitant]
     Active Substance: LORATADINE
  4. CRESTOR [Concomitant]
     Active Substance: ROSUVASTATIN CALCIUM
  5. DIPHENHYDRAMINE [Concomitant]
     Active Substance: DIPHENHYDRAMINE
  6. EPINEPHRINE [Concomitant]
     Active Substance: EPINEPHRINE
  7. HYDROCORTISONE [Concomitant]
     Active Substance: HYDROCORTISONE
  8. LIDOCAINE [Concomitant]
     Active Substance: LIDOCAINE
  9. LORATADINE [Concomitant]
     Active Substance: LORATADINE
  10. LUMIGAN [Concomitant]
     Active Substance: BIMATOPROST
  11. PLAVIX [Concomitant]
     Active Substance: CLOPIDOGREL BISULFATE
  12. PRILOCAINE [Concomitant]
     Active Substance: PRILOCAINE
  13. STERILE WATER [Concomitant]
     Active Substance: WATER
  14. VITAMIN D NOS [Concomitant]
     Active Substance: VITAMIN D NOS
  15. ZINC [Concomitant]
     Active Substance: ZINC

REACTIONS (6)
  - Heart rate decreased [Unknown]
  - COVID-19 [Recovering/Resolving]
  - Taste disorder [Recovering/Resolving]
  - Dyspnoea [Recovering/Resolving]
  - Anosmia [Recovering/Resolving]
  - SARS-CoV-2 test positive [Recovering/Resolving]

NARRATIVE: CASE EVENT DATE: 20210101
